FAERS Safety Report 9633950 (Version 1)
Quarter: 2013Q4

REPORT INFORMATION
  Report Type: Spontaneous
  Country: CN (occurrence: CN)
  Receive Date: 20131021
  Receipt Date: 20131021
  Transmission Date: 20140711
  Serious: Yes (Other)
  Sender: FDA-Public Use
  Company Number: CN-ASTRAZENECA-2013SE45851

PATIENT
  Age: 29902 Day
  Sex: Male
  Weight: 55 kg

DRUGS (2)
  1. QUETIAPINE FUMARATE [Suspect]
     Indication: TRANSIENT PSYCHOSIS
     Route: 048
     Dates: start: 20121017, end: 20121018
  2. CLONAZEPAM [Suspect]
     Indication: TRANSIENT PSYCHOSIS
     Route: 048
     Dates: start: 20121017, end: 20121017

REACTIONS (2)
  - Unresponsive to stimuli [Recovered/Resolved]
  - Sedation [Recovering/Resolving]
